FAERS Safety Report 10383305 (Version 2)
Quarter: 2014Q3

REPORT INFORMATION
  Report Type: Spontaneous
  Country: DE (occurrence: DE)
  Receive Date: 20140814
  Receipt Date: 20140826
  Transmission Date: 20150326
  Serious: Yes (Other)
  Sender: FDA-Public Use
  Company Number: DE-AMGEN-DEUSP2014060806

PATIENT
  Sex: Female
  Weight: 63 kg

DRUGS (5)
  1. BONDIOL [Concomitant]
     Active Substance: ALFACALCIDOL
     Dosage: 0.25 MUG, BID
     Route: 065
  2. EBRANTIL                           /00631801/ [Concomitant]
     Active Substance: URAPIDIL
     Dosage: UNK UNK, BID
     Route: 065
  3. ARANESP [Suspect]
     Active Substance: DARBEPOETIN ALFA
     Indication: RENAL FAILURE CHRONIC
     Dosage: 40 MUG, QWK
     Route: 058
     Dates: start: 20140627, end: 20140808
  4. OLMETEC [Concomitant]
     Active Substance: OLMESARTAN MEDOXOMIL
     Dosage: 10 MG, BID
     Route: 065
  5. METOHEXAL                          /00376902/ [Concomitant]
     Active Substance: METOPROLOL SUCCINATE
     Dosage: 95 MG, BID
     Route: 065

REACTIONS (3)
  - Hypertensive crisis [Recovering/Resolving]
  - Alopecia [Not Recovered/Not Resolved]
  - Drug hypersensitivity [Unknown]

NARRATIVE: CASE EVENT DATE: 20140630
